FAERS Safety Report 6371412-4 (Version None)
Quarter: 2009Q3

REPORT INFORMATION
  Report Type: 
  Country: None (occurrence: None)
  Receive Date: 20090923
  Receipt Date: 20090722
  Transmission Date: 20100115
  Serious: Yes (Other)
  Sender: FDA-Public Use
  Company Number: US-ASTRAZENECA-2007UW12246

PATIENT
  Age: 11867 Day
  Sex: Female
  Weight: 99.8 kg

DRUGS (5)
  1. SEROQUEL [Suspect]
     Indication: BIPOLAR DISORDER
     Dosage: 25 MG TO 100 MG
     Route: 048
     Dates: start: 20010903, end: 20060426
  2. ABILIFY [Concomitant]
     Dates: start: 20040101, end: 20060101
  3. AMBIEN [Concomitant]
     Dates: start: 20080101
  4. DEPAKOTE [Concomitant]
     Dates: start: 20080101
  5. LEXAPRO [Concomitant]
     Dates: start: 20020701

REACTIONS (4)
  - BLOOD TRIGLYCERIDES INCREASED [None]
  - DIABETIC KETOACIDOSIS [None]
  - HYPERHOMOCYSTEINAEMIA [None]
  - TYPE 2 DIABETES MELLITUS [None]
